FAERS Safety Report 9380288 (Version 1)
Quarter: 2013Q3

REPORT INFORMATION
  Report Type: Spontaneous
  Country: US (occurrence: US)
  Receive Date: 20130702
  Receipt Date: 20130702
  Transmission Date: 20140515
  Serious: Yes (Other)
  Sender: FDA-Public Use
  Company Number: US-PFIZER INC-2013193334

PATIENT
  Sex: Male

DRUGS (1)
  1. PRIMATENE [Suspect]
     Indication: ASTHMA
     Dosage: 2 DF, UNK
     Route: 048

REACTIONS (1)
  - Paralysis [Unknown]
